FAERS Safety Report 7437133-1 (Version None)
Quarter: 2011Q2

REPORT INFORMATION
  Report Type: 
  Country: None (occurrence: None)
  Receive Date: 20110426
  Receipt Date: 20110418
  Transmission Date: 20111010
  Serious: Yes (Hospitalization, Other)
  Sender: FDA-Public Use
  Company Number: IE-MEDIMMUNE-MEDI-0012398

PATIENT
  Sex: Male

DRUGS (5)
  1. DOMPERIDONE [Concomitant]
  2. OMEPRAZOLE [Concomitant]
  3. CAFFEINE [Concomitant]
  4. SYNAGIS [Suspect]
     Route: 030
     Dates: start: 20101210, end: 20101210
  5. PYRIDOSTIGMINE BROMIDE [Concomitant]

REACTIONS (2)
  - H1N1 INFLUENZA [None]
  - LOWER RESPIRATORY TRACT INFECTION [None]
